FAERS Safety Report 18622833 (Version 3)
Quarter: 2023Q2

REPORT INFORMATION
  Report Type: Spontaneous
  Country: DK (occurrence: DK)
  Receive Date: 20201216
  Receipt Date: 20230407
  Transmission Date: 20230722
  Serious: Yes (Death, Life-Threatening, Hospitalization)
  Sender: FDA-Public Use
  Company Number: None

PATIENT
  Age: 77 Year
  Sex: Male
  Weight: 72 kg

DRUGS (5)
  1. HYRIMOZ [Suspect]
     Active Substance: ADALIMUMAB-ADAZ
     Indication: Rheumatoid arthritis
     Dosage: 40 MG, Q2W (DOSE PAUSED ON 19 OCT 2020 TO A UNKNOWN DATE)
     Route: 058
     Dates: start: 20200421, end: 20201102
  2. METOPROLOL SUCCINATE [Concomitant]
     Active Substance: METOPROLOL SUCCINATE
     Indication: Arrhythmia
     Dosage: 25 MG, QD
     Route: 048
     Dates: start: 20131209, end: 202210
  3. HJERTEMAGNYL [Concomitant]
     Indication: Thrombosis prophylaxis
     Dosage: 150 MG, QD
     Route: 048
     Dates: start: 20140721
  4. PANTOPRAZOLE SODIUM [Concomitant]
     Active Substance: PANTOPRAZOLE SODIUM
     Indication: Gastrooesophageal reflux disease
     Dosage: 40 MG, QD
     Route: 048
     Dates: start: 20170106
  5. RAMIPRIL [Concomitant]
     Active Substance: RAMIPRIL
     Indication: Hypertension
     Dosage: 5 MG, QD
     Route: 048
     Dates: start: 20131209

REACTIONS (3)
  - Acute respiratory distress syndrome [Fatal]
  - Pulmonary fibrosis [Fatal]
  - Dyspnoea [Fatal]

NARRATIVE: CASE EVENT DATE: 20201010
